FAERS Safety Report 24646703 (Version 1)
Quarter: 2024Q4

REPORT INFORMATION
  Report Type: Spontaneous
  Country: US (occurrence: None)
  Receive Date: 20241120
  Receipt Date: 20241120
  Transmission Date: 20250115
  Serious: Yes (Death)
  Sender: Public
  Company Number: None

PATIENT
  Age: 36 Year
  Sex: Male

DRUGS (6)
  1. ISENTRESS [Suspect]
     Active Substance: RALTEGRAVIR POTASSIUM
     Indication: HIV infection
     Dosage: 400 MG BID ORAL
     Route: 048
     Dates: start: 20241024
  2. EMTRICITABINE\TENOFOVIR DISOPROXIL [Suspect]
     Active Substance: EMTRICITABINE\TENOFOVIR DISOPROXIL
     Indication: HIV infection
     Dosage: 200/300 DAILY ORAL? ?
     Route: 048
     Dates: start: 20241024, end: 20241119
  3. ETHAMBUTOL [Concomitant]
     Active Substance: ETHAMBUTOL HYDROCHLORIDE
  4. isonaizid [Concomitant]
  5. RIFABUTIN [Concomitant]
     Active Substance: RIFABUTIN
  6. PYRAZINAMIDE [Concomitant]
     Active Substance: PYRAZINAMIDE

REACTIONS (3)
  - Hepatic failure [None]
  - Drug interaction [None]
  - Product substitution [None]

NARRATIVE: CASE EVENT DATE: 20241119
